FAERS Safety Report 8220005-2 (Version None)
Quarter: 2012Q1

REPORT INFORMATION
  Report Type: 
  Country: None (occurrence: None)
  Receive Date: 20120301
  Receipt Date: 20111019
  Transmission Date: 20120608
  Serious: Yes (Other)
  Sender: FDA-Public Use
  Company Number: 304921USA

PATIENT
  Sex: Female

DRUGS (1)
  1. NITROFURANTOIN [Suspect]
     Dosage: (100 MG)
     Dates: start: 20111008, end: 20111008

REACTIONS (11)
  - ANAPHYLACTIC REACTION [None]
  - BURNS SECOND DEGREE [None]
  - AURICULAR SWELLING [None]
  - DYSPNOEA [None]
  - URTICARIA [None]
  - ORAL FUNGAL INFECTION [None]
  - CHEST PAIN [None]
  - NAUSEA [None]
  - DIARRHOEA [None]
  - SKIN BURNING SENSATION [None]
  - SWELLING [None]
